FAERS Safety Report 17767206 (Version 1)
Quarter: 2020Q2

REPORT INFORMATION
  Report Type: Spontaneous
  Country: US (occurrence: US)
  Receive Date: 20200511
  Receipt Date: 20200511
  Transmission Date: 20200714
  Serious: Yes (Other)
  Sender: FDA-Public Use
  Company Number: US-PFIZER INC-2020185344

PATIENT
  Age: 37 Year
  Sex: Female
  Weight: 84.37 kg

DRUGS (1)
  1. ADVIL LIQUI-GELS [Suspect]
     Active Substance: IBUPROFEN
     Indication: MIGRAINE
     Dosage: 400 MG
     Dates: end: 202005

REACTIONS (9)
  - Reaction to excipient [Recovering/Resolving]
  - Dizziness [Recovered/Resolved]
  - Speech disorder [Recovered/Resolved]
  - Anaphylactic shock [Recovering/Resolving]
  - Arthralgia [Recovering/Resolving]
  - Paraesthesia oral [Recovered/Resolved]
  - Dysphagia [Recovered/Resolved]
  - Nausea [Recovered/Resolved]
  - Movement disorder [Recovered/Resolved]

NARRATIVE: CASE EVENT DATE: 20200506
